FAERS Safety Report 22128345 (Version 1)
Quarter: 2023Q1

REPORT INFORMATION
  Report Type: Spontaneous
  Country: DE (occurrence: DE)
  Receive Date: 20230323
  Receipt Date: 20230323
  Transmission Date: 20230418
  Serious: Yes (Other)
  Sender: FDA-Public Use
  Company Number: None

PATIENT
  Age: 14 Year
  Sex: Male
  Weight: 40 kg

DRUGS (2)
  1. IBUPROFEN [Suspect]
     Active Substance: IBUPROFEN
     Indication: Pyrexia
     Dosage: UNK
     Route: 048
  2. IBUPROFEN [Suspect]
     Active Substance: IBUPROFEN
     Indication: Pain

REACTIONS (10)
  - Hallucination [Recovered/Resolved]
  - Altered state of consciousness [Recovered/Resolved]
  - Anxiety [Recovered/Resolved]
  - Confusional state [Recovered/Resolved]
  - Nightmare [Recovered/Resolved]
  - Palpitations [Recovered/Resolved]
  - Panic attack [Recovered/Resolved]
  - Restlessness [Recovered/Resolved]
  - Sleep disorder [Recovered/Resolved]
  - Tremor [Recovered/Resolved]
